FAERS Safety Report 18202313 (Version 1)
Quarter: 2020Q3

REPORT INFORMATION
  Report Type: Spontaneous
  Country: US (occurrence: US)
  Receive Date: 20200826
  Receipt Date: 20200826
  Transmission Date: 20201103
  Serious: No
  Sender: FDA-Public Use
  Company Number: None

PATIENT
  Age: 79 Year
  Sex: Female

DRUGS (1)
  1. CAPECITABINE TAB 500MG [Suspect]
     Active Substance: CAPECITABINE
     Route: 048
     Dates: start: 202007

REACTIONS (4)
  - Rash [None]
  - Eye pruritus [None]
  - Ocular hyperaemia [None]
  - Hypersensitivity [None]

NARRATIVE: CASE EVENT DATE: 20200826
